FAERS Safety Report 17504593 (Version 1)
Quarter: 2020Q1

REPORT INFORMATION
  Report Type: Spontaneous
  Country: US (occurrence: US)
  Receive Date: 20200305
  Receipt Date: 20200305
  Transmission Date: 20200409
  Serious: No
  Sender: FDA-Public Use
  Company Number: US-SA-2020SA053694

PATIENT
  Age: 57 Year
  Sex: Female

DRUGS (7)
  1. EUCERIN [SALICYLIC ACID] [Concomitant]
  2. TOPIRAMATE. [Concomitant]
     Active Substance: TOPIRAMATE
  3. LISINOPRIL. [Concomitant]
     Active Substance: LISINOPRIL
  4. ROSUVASTATIN CALCIUM. [Concomitant]
     Active Substance: ROSUVASTATIN CALCIUM
  5. HYDROCHLOROTHIAZIDE. [Concomitant]
     Active Substance: HYDROCHLOROTHIAZIDE
  6. DUPIXENT [Suspect]
     Active Substance: DUPILUMAB
     Dosage: 300 MG, QOW
     Route: 058
  7. OMEPRAZOLE. [Concomitant]
     Active Substance: OMEPRAZOLE

REACTIONS (8)
  - Papule [Unknown]
  - Rash macular [Unknown]
  - Erythema [Unknown]
  - Pigmentation disorder [Unknown]
  - Macule [Unknown]
  - Skin texture abnormal [Unknown]
  - Xerosis [Unknown]
  - Alopecia [Unknown]
